FAERS Safety Report 7723403-6 (Version None)
Quarter: 2011Q3

REPORT INFORMATION
  Report Type: 
  Country: None (occurrence: None)
  Receive Date: 20110901
  Receipt Date: 20110824
  Transmission Date: 20111222
  Serious: Yes (Death, Other)
  Sender: FDA-Public Use
  Company Number: US-BAYER-200939929NA

PATIENT
  Age: 63 Year
  Sex: Female
  Weight: 63 kg

DRUGS (13)
  1. MANNITOL [Concomitant]
  2. AMICAR [Concomitant]
  3. THEOPHYLLINE-SR [Concomitant]
     Indication: ASTHMA
  4. ANCEF [Concomitant]
  5. ATACAND [Concomitant]
     Indication: CARDIAC FAILURE
     Dosage: 32 MG, UNK
     Route: 048
     Dates: start: 19990701
  6. ISOSORBIDE MONONITRATE [Concomitant]
     Dosage: 30 MG, UNK
     Route: 048
     Dates: start: 20020211
  7. CLONIDINE [Concomitant]
     Dosage: 3 MG, UNK
     Route: 048
     Dates: start: 19980402
  8. PLAVIX [Concomitant]
     Dosage: 75 MG, UNK
     Route: 048
     Dates: start: 20021215
  9. HEPARIN [Concomitant]
  10. TRASYLOL [Suspect]
     Indication: CORONARY ARTERY BYPASS
     Dosage: UNK
     Route: 042
     Dates: start: 20021118
  11. ZOCOR [Concomitant]
     Dosage: 20 MG, UNK
     Route: 048
     Dates: start: 20021205
  12. THEOPHYLLINE-SR [Concomitant]
     Indication: CHRONIC OBSTRUCTIVE PULMONARY DISEASE
     Dosage: 200 MG, UNK
     Route: 048
     Dates: start: 20021205
  13. LASIX [Concomitant]
     Indication: FLUID RETENTION
     Dosage: 40 MG, UNK
     Route: 048
     Dates: start: 20031031

REACTIONS (13)
  - STRESS [None]
  - UNEVALUABLE EVENT [None]
  - RENAL INJURY [None]
  - EMOTIONAL DISTRESS [None]
  - MULTI-ORGAN FAILURE [None]
  - RENAL IMPAIRMENT [None]
  - ANHEDONIA [None]
  - DEATH [None]
  - INJURY [None]
  - ANXIETY [None]
  - PAIN [None]
  - RENAL FAILURE [None]
  - FEAR [None]
